FAERS Safety Report 23689681 (Version 2)
Quarter: 2024Q4

REPORT INFORMATION
  Report Type: Report from Study
  Country: US (occurrence: US)
  Receive Date: 20240331
  Receipt Date: 20241216
  Transmission Date: 20250115
  Serious: Yes (Hospitalization)
  Sender: EMD SERONO INC
  Company Number: US-Merck Healthcare KGaA-2024016509

PATIENT
  Sex: Female

DRUGS (2)
  1. MAVENCLAD [Suspect]
     Active Substance: CLADRIBINE
     Indication: Multiple sclerosis
     Dosage: YEAR ONE MONTH ONE THERAPY
  2. MAVENCLAD [Suspect]
     Active Substance: CLADRIBINE
     Dosage: YEAR ONE MONTH TWO THERAPY

REACTIONS (7)
  - Leukopenia [Unknown]
  - T-lymphocyte count decreased [Unknown]
  - Oropharyngeal pain [Unknown]
  - Ear haemorrhage [Unknown]
  - Ear discomfort [Unknown]
  - Asthenia [Unknown]
  - Fatigue [Unknown]
